FAERS Safety Report 6344756-X (Version None)
Quarter: 2009Q3

REPORT INFORMATION
  Report Type: 
  Country: None (occurrence: None)
  Receive Date: 20090904
  Receipt Date: 20090817
  Transmission Date: 20100115
  Serious: Yes (Death, Hospitalization)
  Sender: FDA-Public Use
  Company Number: 2009AL001185

PATIENT
  Age: 69 Year
  Sex: Female

DRUGS (19)
  1. DIGOXIN T [Suspect]
     Dosage: 0.125MG, DAILY, PO
     Route: 048
  2. AMIODARONE HCL [Concomitant]
  3. MULTI-VITAMIN [Concomitant]
  4. MULTI-VITAMIN [Concomitant]
  5. OS-CAL [Concomitant]
  6. EFFEXOR [Concomitant]
  7. REMERON [Concomitant]
  8. LESCOL [Concomitant]
  9. ACCUPRIL [Concomitant]
  10. ADVAIR HFA [Concomitant]
  11. COUMADIN [Concomitant]
  12. HYOSCYAMINE [Concomitant]
  13. MIRTAZAPINE [Concomitant]
  14. PACTERONE [Concomitant]
  15. QUINAPRIL [Concomitant]
  16. TEMAZEPAN [Concomitant]
  17. ATROVENT [Concomitant]
  18. RESTORIL [Concomitant]
  19. LEVSIN [Concomitant]

REACTIONS (29)
  - ANHEDONIA [None]
  - ARTHRALGIA [None]
  - ATRIAL FLUTTER [None]
  - B-CELL LYMPHOMA [None]
  - BLOOD PRESSURE INCREASED [None]
  - BRADYCARDIA [None]
  - CAROTID ARTERY STENOSIS [None]
  - DEHYDRATION [None]
  - ECONOMIC PROBLEM [None]
  - EMOTIONAL DISORDER [None]
  - FEELING ABNORMAL [None]
  - FLUID INTAKE REDUCED [None]
  - INJURY [None]
  - JOINT SWELLING [None]
  - MENTAL DISORDER [None]
  - NASOPHARYNGITIS [None]
  - NODAL RHYTHM [None]
  - OEDEMA PERIPHERAL [None]
  - PAIN [None]
  - PANCYTOPENIA [None]
  - PNEUMONIA [None]
  - PNEUMOTHORAX [None]
  - RENAL FAILURE [None]
  - RESPIRATORY DISTRESS [None]
  - SEPSIS [None]
  - SOCIAL PROBLEM [None]
  - THERAPEUTIC AGENT TOXICITY [None]
  - UPPER RESPIRATORY TRACT INFECTION [None]
  - WHEEZING [None]
